FAERS Safety Report 17887492 (Version 2)
Quarter: 2020Q3

REPORT INFORMATION
  Report Type: Spontaneous
  Country: RO (occurrence: RO)
  Receive Date: 20200611
  Receipt Date: 20200702
  Transmission Date: 20201103
  Serious: Yes (Other)
  Sender: FDA-Public Use
  Company Number: NVSC2020RO162612

PATIENT
  Age: 62 Year
  Sex: Female

DRUGS (4)
  1. LETROZOLE. [Suspect]
     Active Substance: LETROZOLE
     Indication: BREAST CANCER
     Dosage: UNK
     Route: 065
     Dates: start: 20180222
  2. CDDP [Concomitant]
     Active Substance: CISPLATIN
     Indication: PRODUCT USED FOR UNKNOWN INDICATION
     Dosage: UNK, WEEKLY (1 (UNKNOWN UNITS))
     Route: 065
  3. IBRANCE [Suspect]
     Active Substance: PALBOCICLIB
     Indication: BREAST CANCER
     Dosage: 125 MG, DAILY
     Route: 048
     Dates: start: 20180222
  4. IBANDRONIC ACID. [Concomitant]
     Active Substance: IBANDRONIC ACID
     Indication: PRODUCT USED FOR UNKNOWN INDICATION
     Dosage: UNK
     Route: 065

REACTIONS (13)
  - Pyrexia [Recovered/Resolved]
  - Lymphangitis [Recovered/Resolved]
  - Anaemia [Recovered/Resolved]
  - Squamous cell carcinoma of the cervix [Recovered/Resolved]
  - Neoplasm progression [Recovered/Resolved]
  - Neutropenia [Recovered/Resolved]
  - Cough [Recovered/Resolved]
  - Urogenital fistula [Recovered/Resolved]
  - Thrombocytopenia [Recovered/Resolved]
  - Infection [Recovered/Resolved]
  - Asthenia [Recovered/Resolved]
  - Second primary malignancy [Recovered/Resolved]
  - Human papilloma virus test positive [Recovered/Resolved]

NARRATIVE: CASE EVENT DATE: 20180510
